FAERS Safety Report 8116905-4 (Version None)
Quarter: 2012Q1

REPORT INFORMATION
  Report Type: 
  Country: None (occurrence: None)
  Receive Date: 20120206
  Receipt Date: 20120131
  Transmission Date: 20120608
  Serious: Yes (Other)
  Sender: FDA-Public Use
  Company Number: GXKR2010GB12159

PATIENT
  Sex: Male

DRUGS (4)
  1. FLECAINIDE ACETATE [Suspect]
     Dosage: 110 MG, QD
     Route: 065
  2. BISOPROLOL [Suspect]
     Dosage: 10 MG, QD
     Route: 065
  3. ALTACE [Suspect]
     Indication: HYPERTENSION
     Dosage: 5 MG, QD
     Route: 048
     Dates: start: 20100401, end: 20100101
  4. SIMVASTATIN [Suspect]
     Route: 065

REACTIONS (3)
  - ATRIAL FIBRILLATION [None]
  - DRUG INTERACTION [None]
  - PALPITATIONS [None]
